FAERS Safety Report 7030478-9 (Version None)
Quarter: 2010Q4

REPORT INFORMATION
  Report Type: 
  Country: None (occurrence: None)
  Receive Date: 20101006
  Receipt Date: 20100928
  Transmission Date: 20110411
  Serious: Yes (Other)
  Sender: FDA-Public Use
  Company Number: MX-JNJFOC-20101000211

PATIENT
  Age: 22 Year
  Sex: Female
  Weight: 51 kg

DRUGS (1)
  1. ORTHO EVRA [Suspect]
     Indication: CONTRACEPTION
     Route: 062

REACTIONS (3)
  - ENDOMETRIAL HYPERTROPHY [None]
  - OVERDOSE [None]
  - VAGINAL DISCHARGE [None]
